FAERS Safety Report 5646919-5 (Version None)
Quarter: 2008Q1

REPORT INFORMATION
  Report Type: 
  Country: None (occurrence: None)
  Receive Date: 20080303
  Receipt Date: 20080224
  Transmission Date: 20080703
  Serious: No
  Sender: FDA-Public Use
  Company Number: IL-ELI_LILLY_AND_COMPANY-IL200802005461

PATIENT
  Sex: Male

DRUGS (1)
  1. CIALIS [Suspect]
     Route: 048

REACTIONS (2)
  - MYALGIA [None]
  - VISUAL ACUITY REDUCED [None]
